FAERS Safety Report 8650967 (Version 2)
Quarter: 2012Q4

REPORT INFORMATION
  Report Type: 
  Country: US (occurrence: US)
  Receive Date: 20120705
  Receipt Date: 20120828
  Transmission Date: 20130627
  Serious: No
  Sender: FDA-Public Use
  Company Number: US-PFIZER INC-2012158752

PATIENT
  Age: 54 Year
  Sex: Female

DRUGS (2)
  1. ALAVERT [Suspect]
     Indication: HYPERSENSITIVITY
     Dosage: 10 mg, 1x/day
     Route: 048
  2. CLARITIN [Suspect]
     Indication: HYPERSENSITIVITY
     Dosage: UNK

REACTIONS (4)
  - Drug hypersensitivity [Unknown]
  - Feeling abnormal [Unknown]
  - Fatigue [Unknown]
  - Somnolence [Recovered/Resolved]
